FAERS Safety Report 5206126-7 (Version None)
Quarter: 2007Q1

REPORT INFORMATION
  Report Type: 
  Country: None (occurrence: None)
  Receive Date: 20070108
  Receipt Date: 20061227
  Transmission Date: 20070707
  Serious: Yes (Death, Other)
  Sender: FDA-Public Use
  Company Number: 24055-1

PATIENT
  Age: 77 Year
  Sex: Male

DRUGS (1)
  1. DACARBAZINE [Suspect]
     Indication: METASTATIC MALIGNANT MELANOMA
     Dosage: 2200MG
     Dates: start: 20050711, end: 20050822

REACTIONS (1)
  - DEATH [None]
